FAERS Safety Report 4714609-9 (Version None)
Quarter: 2005Q3

REPORT INFORMATION
  Report Type: 
  Country: None (occurrence: None)
  Receive Date: 20050714
  Receipt Date: 20050714
  Transmission Date: 20060218
  Serious: No
  Sender: FDA-Public Use
  Company Number: None

PATIENT
  Age: 71 Year
  Sex: Female
  Weight: 72.5755 kg

DRUGS (1)
  1. ELIDEL [Suspect]
     Indication: RASH
     Dosage: EVERY DAY FOR 6 MONTHS

REACTIONS (1)
  - SQUAMOUS CELL CARCINOMA OF SKIN [None]
